FAERS Safety Report 19434174 (Version 1)
Quarter: 2021Q2

REPORT INFORMATION
  Report Type: Spontaneous
  Country: US (occurrence: US)
  Receive Date: 20210617
  Receipt Date: 20210617
  Transmission Date: 20210717
  Serious: No
  Sender: FDA-Public Use
  Company Number: US-ROCHE-2590392

PATIENT
  Sex: Female
  Weight: 73.09 kg

DRUGS (1)
  1. ACTEMRA [Suspect]
     Active Substance: TOCILIZUMAB
     Indication: PRODUCT USED FOR UNKNOWN INDICATION
     Dosage: 162 MG/0.9ML PFS, ONGOING: UNKNOWN
     Route: 058

REACTIONS (5)
  - Syringe issue [Unknown]
  - Product outer packaging issue [Unknown]
  - Accidental exposure to product [Unknown]
  - No adverse event [Unknown]
  - Occupational exposure to product [Unknown]
